FAERS Safety Report 5408371-4 (Version None)
Quarter: 2007Q3

REPORT INFORMATION
  Report Type: 
  Country: None (occurrence: None)
  Receive Date: 20070806
  Receipt Date: 20070727
  Transmission Date: 20080115
  Serious: Yes (Other)
  Sender: FDA-Public Use
  Company Number: 2007SP015360

PATIENT
  Age: 40 Year
  Sex: Female

DRUGS (2)
  1. DESLORATADINE [Suspect]
     Indication: HYPERSENSITIVITY
     Dosage: 5 MG; QD; PO, 5 MG; QD; PO
     Route: 048
     Dates: start: 20070619
  2. DESLORATADINE [Suspect]
     Indication: HYPERSENSITIVITY
     Dosage: 5 MG; QD; PO, 5 MG; QD; PO
     Route: 048
     Dates: start: 20070621

REACTIONS (4)
  - ANGIOEDEMA [None]
  - CHEST DISCOMFORT [None]
  - DYSPNOEA [None]
  - SENSATION OF FOREIGN BODY [None]
